FAERS Safety Report 24120406 (Version 3)
Quarter: 2024Q3

REPORT INFORMATION
  Report Type: Spontaneous
  Country: US (occurrence: US)
  Receive Date: 20240722
  Receipt Date: 20240823
  Transmission Date: 20241017
  Serious: No
  Sender: PFIZER
  Company Number: US-PFIZER INC-PV202400077748

PATIENT
  Age: 64 Year
  Sex: Female
  Weight: 89.161 kg

DRUGS (3)
  1. LORBRENA [Suspect]
     Active Substance: LORLATINIB
     Indication: Non-small cell lung cancer metastatic
     Dosage: 1 TABLET (100MG), ONCE A DAY ON DAY 1-28 EVERY 28 DAYS
     Route: 048
     Dates: start: 20240617
  2. LORBRENA [Suspect]
     Active Substance: LORLATINIB
     Dosage: 1 TAB (25MG) EVERYDAY FOR 2 WEEKS,THEN INC TO 2 TABS (50MG) EVERYDAY FOR 2 WEEKS)
     Route: 048
     Dates: start: 20240630
  3. LORBRENA [Suspect]
     Active Substance: LORLATINIB
     Dosage: 3 25MG TABS QDAY X 2 WEEKS, THEN INCREASE TO 4 25MG TABLET QDAY X 2 WEEKS
     Route: 048

REACTIONS (4)
  - Blood glucose increased [Not Recovered/Not Resolved]
  - Blood pressure increased [Not Recovered/Not Resolved]
  - Lipids increased [Not Recovered/Not Resolved]
  - Off label use [Unknown]

NARRATIVE: CASE EVENT DATE: 20240630
